FAERS Safety Report 26065582 (Version 4)
Quarter: 2025Q4

REPORT INFORMATION
  Report Type: Spontaneous
  Country: US (occurrence: US)
  Receive Date: 20251119
  Receipt Date: 20251215
  Transmission Date: 20260118
  Serious: Yes (Hospitalization)
  Sender: CSL BEHRING
  Company Number: US-BEH-2025225738

PATIENT
  Age: 6 Year
  Sex: Male
  Weight: 22.7 kg

DRUGS (6)
  1. HIZENTRA [Suspect]
     Active Substance: HUMAN IMMUNOGLOBULIN G
     Indication: Combined immunodeficiency
     Dosage: 6 G, QOW
     Route: 058
     Dates: start: 20251029, end: 20251029
  2. HIZENTRA [Suspect]
     Active Substance: HUMAN IMMUNOGLOBULIN G
     Dosage: 6 G, QOW
     Route: 058
     Dates: start: 20251029, end: 20251029
  3. HIZENTRA [Suspect]
     Active Substance: HUMAN IMMUNOGLOBULIN G
     Dosage: UNK
     Route: 065
  4. HIZENTRA [Suspect]
     Active Substance: HUMAN IMMUNOGLOBULIN G
     Dosage: 6 G, BIW
     Route: 058
     Dates: start: 20251029
  5. HIZENTRA [Suspect]
     Active Substance: HUMAN IMMUNOGLOBULIN G
     Dosage: UNK
     Route: 065
     Dates: start: 20251113
  6. HIZENTRA [Suspect]
     Active Substance: HUMAN IMMUNOGLOBULIN G
     Dosage: 6 G, BIW
     Route: 058

REACTIONS (8)
  - Meningitis [Unknown]
  - Meningitis aseptic [Recovering/Resolving]
  - Pain in extremity [Recovered/Resolved]
  - Headache [Recovered/Resolved]
  - Headache [Unknown]
  - Vomiting [Unknown]
  - Pain in extremity [Unknown]
  - Therapy cessation [Unknown]

NARRATIVE: CASE EVENT DATE: 20251031
